FAERS Safety Report 9393145 (Version 1)
Quarter: 2013Q3

REPORT INFORMATION
  Report Type: Report from Study
  Country: ES (occurrence: ES)
  Receive Date: 20130710
  Receipt Date: 20130710
  Transmission Date: 20140515
  Serious: No
  Sender: FDA-Public Use
  Company Number: ES-ELI_LILLY_AND_COMPANY-ES201304002071

PATIENT
  Age: 8 Year
  Sex: Male
  Weight: 33 kg

DRUGS (2)
  1. ATOMOXETINE HYDROCHLORIDE [Suspect]
     Indication: ATTENTION DEFICIT/HYPERACTIVITY DISORDER
     Dosage: UNK DAILY
     Route: 048
     Dates: start: 201212
  2. ATOMOXETINE HYDROCHLORIDE [Suspect]
     Dosage: 40 MG, QD
     Route: 048
     Dates: start: 201301

REACTIONS (5)
  - Somnolence [Not Recovered/Not Resolved]
  - Nausea [Not Recovered/Not Resolved]
  - Vomiting [Unknown]
  - Abdominal pain [Not Recovered/Not Resolved]
  - Decreased appetite [Not Recovered/Not Resolved]
